FAERS Safety Report 8610883-7 (Version None)
Quarter: 2012Q3

REPORT INFORMATION
  Report Type: 
  Country: None (occurrence: None)
  Receive Date: 20120423
  Receipt Date: 20100625
  Transmission Date: 20120928
  Serious: Yes (Other)
  Sender: FDA-Public Use
  Company Number: PHHY2010US41708

PATIENT
  Age: 74 Year
  Sex: Female

DRUGS (1)
  1. FEMARA [Suspect]
     Indication: BREAST CANCER
     Dosage: 2.5 MG/DAY, ORAL
     Route: 048
     Dates: start: 20100219

REACTIONS (3)
  - FALL [None]
  - UPPER LIMB FRACTURE [None]
  - DIZZINESS [None]
